FAERS Safety Report 23162276 (Version 2)
Quarter: 2024Q1

REPORT INFORMATION
  Report Type: Spontaneous
  Country: US (occurrence: US)
  Receive Date: 20231109
  Receipt Date: 20240129
  Transmission Date: 20240409
  Serious: No
  Sender: FDA-Public Use
  Company Number: US-SA-SAC20231101001561

PATIENT
  Sex: Female

DRUGS (2)
  1. DUPIXENT [Suspect]
     Active Substance: DUPILUMAB
     Indication: Asthma
     Dosage: 300 MG, QOW
     Route: 058
     Dates: start: 202307
  2. PRALUENT [Concomitant]
     Active Substance: ALIROCUMAB
     Indication: Blood cholesterol

REACTIONS (5)
  - Acne [Unknown]
  - Seasonal allergy [Unknown]
  - Condition aggravated [Unknown]
  - Sinusitis [Unknown]
  - Rash [Unknown]
